FAERS Safety Report 10851257 (Version 1)
Quarter: 2015Q1

REPORT INFORMATION
  Report Type: Spontaneous
  Country: US (occurrence: US)
  Receive Date: 20150222
  Receipt Date: 20150222
  Transmission Date: 20150721
  Serious: No
  Sender: FDA-Public Use
  Company Number: US-ALLERGAN-1407706US

PATIENT
  Sex: Female

DRUGS (2)
  1. BOTOX COSMETIC [Suspect]
     Active Substance: ONABOTULINUMTOXINA
     Dosage: 25.5 UNITS, SINGLE
     Route: 030
     Dates: start: 20140320, end: 20140320
  2. BOTOX COSMETIC [Suspect]
     Active Substance: ONABOTULINUMTOXINA
     Indication: SKIN WRINKLING
     Dosage: 7.5 UNK, UNK
     Route: 030
     Dates: start: 20140328, end: 20140328

REACTIONS (2)
  - Therapeutic response decreased [Unknown]
  - Wrong technique in drug usage process [Unknown]
